FAERS Safety Report 8952340 (Version 1)
Quarter: 2012Q4

REPORT INFORMATION
  Report Type: 
  Country: ES (occurrence: ES)
  Receive Date: 20121205
  Receipt Date: 20121205
  Transmission Date: 20130627
  Serious: Yes (Other)
  Sender: FDA-Public Use
  Company Number: ES-ACCORD-015441

PATIENT
  Age: 53 Year
  Sex: Female

DRUGS (1)
  1. DOCETAXEL [Suspect]
     Indication: DUCTAL BREAST CARCINOMA STAGE II
     Dosage: extravasation of 50 ml of decetaxel into the left arm was noticed
     Route: 042

REACTIONS (2)
  - Metaplasia [Recovered/Resolved with Sequelae]
  - Infusion site extravasation [Recovered/Resolved with Sequelae]
